FAERS Safety Report 7510251-5 (Version None)
Quarter: 2011Q2

REPORT INFORMATION
  Report Type: 
  Country: None (occurrence: None)
  Receive Date: 20110527
  Receipt Date: 20110518
  Transmission Date: 20111010
  Serious: Yes (Other)
  Sender: FDA-Public Use
  Company Number: US-ASTRAZENECA-2011SE30941

PATIENT
  Age: 64 Year
  Sex: Male

DRUGS (2)
  1. PULMICORT FLEXHALER [Suspect]
     Route: 055
  2. TOPROL-XL [Suspect]
     Route: 048

REACTIONS (4)
  - MACULAR DEGENERATION [None]
  - VISUAL ACUITY REDUCED [None]
  - DIABETES MELLITUS [None]
  - BLINDNESS UNILATERAL [None]
